FAERS Safety Report 16363271 (Version 1)
Quarter: 2019Q2

REPORT INFORMATION
  Report Type: Spontaneous
  Country: US (occurrence: US)
  Receive Date: 20190528
  Receipt Date: 20190528
  Transmission Date: 20190711
  Serious: Yes (Other)
  Sender: FDA-Public Use
  Company Number: US-PFIZER INC-2019218972

PATIENT
  Age: 63 Year
  Sex: Female
  Weight: 62.6 kg

DRUGS (3)
  1. DEXILANT [Concomitant]
     Active Substance: DEXLANSOPRAZOLE
     Indication: DYSPEPSIA
     Dosage: 60 MG, 2X/DAY
     Route: 048
  2. LYRICA [Suspect]
     Active Substance: PREGABALIN
     Indication: NERVE INJURY
     Dosage: 200 MG, 2X/DAY
     Route: 048
     Dates: start: 2015
  3. PRISTIQ EXTENDED-RELEASE [Suspect]
     Active Substance: DESVENLAFAXINE SUCCINATE
     Indication: DEPRESSION
     Dosage: 50 MG, UNK
     Route: 048
     Dates: start: 2016

REACTIONS (3)
  - Breast cancer metastatic [Recovering/Resolving]
  - Metastases to lymph nodes [Recovering/Resolving]
  - Mental impairment [Unknown]

NARRATIVE: CASE EVENT DATE: 2019
